FAERS Safety Report 9642587 (Version 3)
Quarter: 2013Q4

REPORT INFORMATION
  Report Type: Spontaneous
  Country: US (occurrence: US)
  Receive Date: 20131024
  Receipt Date: 20131206
  Transmission Date: 20140711
  Serious: No
  Sender: FDA-Public Use
  Company Number: US-PFIZER INC-2013300036

PATIENT
  Age: 47 Year
  Sex: Male

DRUGS (1)
  1. ONDANSETRON [Suspect]
     Indication: NAUSEA
     Dosage: 8 MG, (Q6H PRN)
     Dates: start: 20130515, end: 20130801

REACTIONS (1)
  - Drug ineffective [Unknown]
